FAERS Safety Report 17438124 (Version 3)
Quarter: 2020Q2

REPORT INFORMATION
  Report Type: Report from Study
  Country: US (occurrence: US)
  Receive Date: 20200220
  Receipt Date: 20200623
  Transmission Date: 20200713
  Serious: Yes (Hospitalization)
  Sender: FDA-Public Use
  Company Number: US-SEATTLE GENETICS-2020SGN01080

PATIENT
  Age: 65 Year
  Sex: Male
  Weight: 112.9 kg

DRUGS (12)
  1. ZESTRIL [Concomitant]
     Active Substance: LISINOPRIL
     Dosage: 10 MG, QHS
     Route: 048
  2. BRENTUXIMAB VEDOTIN [Suspect]
     Active Substance: BRENTUXIMAB VEDOTIN
     Indication: HODGKIN^S DISEASE
     Dosage: 90 MG, QCYCLE
     Route: 042
     Dates: start: 20191125, end: 20200131
  3. CALAN [Concomitant]
     Active Substance: VERAPAMIL HYDROCHLORIDE
     Dosage: 120 MG, QHS
     Route: 048
  4. NORCO [Concomitant]
     Active Substance: ACETAMINOPHEN\HYDROCODONE BITARTRATE
     Indication: PAIN
     Dosage: 325 MG, PRN
     Route: 048
  5. DACARBAZINE. [Suspect]
     Active Substance: DACARBAZINE
     Indication: HODGKIN^S DISEASE
     Dosage: 375 MG/M2, QCYCLE
     Route: 042
     Dates: start: 20191125, end: 20200131
  6. VINBLASTINE [Suspect]
     Active Substance: VINBLASTINE
     Indication: HODGKIN^S DISEASE
     Dosage: 6 MG/M2, QCYCLE
     Route: 042
     Dates: start: 20191125, end: 20200131
  7. PHENERGAN [Concomitant]
     Active Substance: PROMETHAZINE HYDROCHLORIDE
     Indication: NAUSEA
     Dosage: 12.5 MG, PRN
     Route: 048
  8. DOXORUBICIN [Suspect]
     Active Substance: DOXORUBICIN
     Indication: HODGKIN^S DISEASE
     Dosage: 25 MG/M2, QCYCLE
     Route: 042
     Dates: start: 20191125, end: 20200131
  9. FILGRASTIM [Suspect]
     Active Substance: FILGRASTIM
     Indication: HODGKIN^S DISEASE
     Route: 065
  10. PEGFILGRASTIM [Suspect]
     Active Substance: PEGFILGRASTIM
     Indication: HODGKIN^S DISEASE
     Dosage: 6 MG, QCYCLE
     Route: 042
     Dates: start: 20191125, end: 20200131
  11. ZYLOPRIM [Concomitant]
     Active Substance: ALLOPURINOL
     Dosage: 300 MG, QHS
     Route: 048
  12. PRILOSEC [Concomitant]
     Active Substance: OMEPRAZOLE MAGNESIUM
     Dosage: 40 MG, QD
     Route: 048

REACTIONS (1)
  - Clostridium difficile infection [Recovered/Resolved]

NARRATIVE: CASE EVENT DATE: 20200206
